FAERS Safety Report 4376499-6 (Version None)
Quarter: 2004Q2

REPORT INFORMATION
  Report Type: 
  Country: None (occurrence: None)
  Receive Date: 20040614
  Receipt Date: 20040331
  Transmission Date: 20050107
  Serious: Yes (Other)
  Sender: FDA-Public Use
  Company Number: 200412427US

PATIENT
  Age: 60 Year
  Sex: Female

DRUGS (6)
  1. ARAVA [Suspect]
     Indication: RHEUMATOID ARTHRITIS
     Route: 048
  2. METHOTREXATE [Concomitant]
     Dosage: DOSE: NOT PROVIDED
  3. FOLIC ACID [Concomitant]
     Dosage: DOSE: NOT PROVIDED
  4. SULINDAC [Concomitant]
  5. LIPITOR [Concomitant]
  6. AZULFIDINE [Concomitant]
     Dosage: DOSE: NOT PROVIDED

REACTIONS (3)
  - ALANINE AMINOTRANSFERASE INCREASED [None]
  - ASPARTATE AMINOTRANSFERASE INCREASED [None]
  - GAMMA-GLUTAMYLTRANSFERASE INCREASED [None]
